FAERS Safety Report 26132812 (Version 1)
Quarter: 2025Q4

REPORT INFORMATION
  Report Type: Spontaneous
  Country: GB (occurrence: GB)
  Receive Date: 20251208
  Receipt Date: 20251208
  Transmission Date: 20260117
  Serious: Yes (Life-Threatening, Hospitalization, Other)
  Sender: BAXTER
  Company Number: GB-MLMSERVICE-20251124-PI724585-00128-1

PATIENT
  Age: 58 Year
  Sex: Female

DRUGS (10)
  1. DOXORUBICIN [Suspect]
     Active Substance: DOXORUBICIN
     Indication: Diffuse large B-cell lymphoma
     Dosage: COMPLETED THREE CYCLES OF CHEMOTHERAPY
     Route: 065
     Dates: end: 202506
  2. CYCLOPHOSPHAMIDE [Suspect]
     Active Substance: CYCLOPHOSPHAMIDE
     Indication: Diffuse large B-cell lymphoma
     Dosage: COMPLETED THREE CYCLES OF CHEMOTHERAPY
     Route: 065
  3. ACYCLOVIR [Suspect]
     Active Substance: ACYCLOVIR
     Indication: Diffuse large B-cell lymphoma
     Route: 065
  4. PREDNISONE [Suspect]
     Active Substance: PREDNISONE
     Indication: Diffuse large B-cell lymphoma
     Dosage: COMPLETED THREE CYCLES OF CHEMOTHERAPY
     Route: 065
     Dates: end: 202506
  5. COTRIMOXAZOLE [Suspect]
     Active Substance: SULFAMETHOXAZOLE\TRIMETHOPRIM
     Route: 065
  6. RITUXIMAB [Suspect]
     Active Substance: RITUXIMAB
     Indication: Diffuse large B-cell lymphoma
     Dosage: COMPLETED THREE CYCLES OF CHEMOTHERAPY
     Route: 065
  7. VINCRISTINE [Suspect]
     Active Substance: VINCRISTINE
     Indication: Diffuse large B-cell lymphoma
     Dosage: COMPLETED THREE CYCLES OF CHEMOTHERAPY
     Route: 065
  8. GANCICLOVIR [Concomitant]
     Active Substance: GANCICLOVIR
     Indication: Cytomegalovirus infection
     Route: 065
  9. Tazocin [Concomitant]
     Indication: Evidence based treatment
     Route: 065
  10. VANCOMYCIN [Concomitant]
     Active Substance: VANCOMYCIN
     Indication: Evidence based treatment
     Route: 065

REACTIONS (22)
  - Drug reaction with eosinophilia and systemic symptoms [Recovering/Resolving]
  - Skin exfoliation [Recovering/Resolving]
  - Pyrexia [Recovering/Resolving]
  - Lethargy [Recovering/Resolving]
  - Hypotension [Recovering/Resolving]
  - Rash erythematous [Recovering/Resolving]
  - Rash maculo-papular [Recovered/Resolved]
  - Eyelid margin crusting [Recovering/Resolving]
  - Purpura [Recovering/Resolving]
  - Lip erosion [Recovering/Resolving]
  - Scab [Recovering/Resolving]
  - Conjunctival irritation [Recovering/Resolving]
  - Hepatic function abnormal [Recovering/Resolving]
  - Swelling face [Recovering/Resolving]
  - Eyelid margin crusting [Recovering/Resolving]
  - Blister [Recovering/Resolving]
  - Skin lesion [Recovering/Resolving]
  - Conjunctival irritation [Recovering/Resolving]
  - Eosinophil count increased [Recovering/Resolving]
  - Alanine aminotransferase increased [Recovering/Resolving]
  - Tachycardia [Recovering/Resolving]
  - Renal impairment [Recovering/Resolving]
